FAERS Safety Report 8514516-X (Version None)
Quarter: 2012Q3

REPORT INFORMATION
  Report Type: 
  Country: None (occurrence: None)
  Receive Date: 20120717
  Receipt Date: 20120711
  Transmission Date: 20120928
  Serious: Yes (Other)
  Sender: FDA-Public Use
  Company Number: CA-SANOFI-AVENTIS-2012SA049366

PATIENT
  Age: 63 Year
  Sex: Female
  Weight: 70 kg

DRUGS (3)
  1. SOLOSTAR [Suspect]
     Indication: DEVICE THERAPY
     Dosage: PREFILLED DISPOSABLE PEN
     Dates: start: 20120601
  2. LANTUS [Suspect]
     Dosage: DOSE + FORM: VARYING DOSE (PREFILLED DISPOSABLE PEN).
     Route: 058
     Dates: start: 20120601
  3. ESTROGENS CONJUGATED [Concomitant]
     Route: 048
     Dates: start: 19960101

REACTIONS (5)
  - DIZZINESS [None]
  - SOMNOLENCE [None]
  - UNEVALUABLE EVENT [None]
  - TREMOR [None]
  - BLOOD GLUCOSE DECREASED [None]
